FAERS Safety Report 9770335 (Version 2)
Quarter: 2014Q3

REPORT INFORMATION
  Report Type: Report from Study
  Country: DE (occurrence: TR)
  Receive Date: 20131218
  Receipt Date: 20140714
  Transmission Date: 20150326
  Serious: Yes (Death, Hospitalization)
  Sender: FDA-Public Use
  Company Number: DE-ACTELION-A-NJ2013-92641

PATIENT
  Age: 73 Year
  Sex: Female
  Weight: 58 kg

DRUGS (1)
  1. VENTAVIS [Suspect]
     Active Substance: ILOPROST
     Indication: PULMONARY HYPERTENSION
     Dosage: 9X1
     Route: 055
     Dates: start: 20130818, end: 20131201

REACTIONS (2)
  - Renal failure chronic [Unknown]
  - Respiratory failure [Fatal]

NARRATIVE: CASE EVENT DATE: 20131120
